FAERS Safety Report 16671850 (Version 1)
Quarter: 2019Q3

REPORT INFORMATION
  Report Type: Spontaneous
  Country: US (occurrence: US)
  Receive Date: 20190806
  Receipt Date: 20190806
  Transmission Date: 20191004
  Serious: No
  Sender: FDA-Public Use
  Company Number: US-AMGEN-USASP2019122594

PATIENT
  Age: 66 Year
  Sex: Female

DRUGS (31)
  1. ORENCIA [Concomitant]
     Active Substance: ABATACEPT
     Dosage: UNK
  2. ALEVE [Concomitant]
     Active Substance: NAPROXEN SODIUM
     Dosage: 500 MILLIGRAM (TWO TIMES A DAY,  PRN)
     Route: 048
  3. FARXIGA [Concomitant]
     Active Substance: DAPAGLIFLOZIN PROPANEDIOL
     Dosage: 10 MILLIGRAM, QD
     Route: 048
  4. VITAMINS NOS [Concomitant]
     Active Substance: VITAMINS
     Dosage: 1 DOSAGE FORM, QD
     Route: 048
  5. SULFASALAZINE. [Suspect]
     Active Substance: SULFASALAZINE
     Indication: PRODUCT USED FOR UNKNOWN INDICATION
     Dosage: UNK
     Route: 065
  6. LEFLUNOMIDE. [Concomitant]
     Active Substance: LEFLUNOMIDE
     Dosage: 20 MILLIGRAM, QD
     Route: 048
  7. CELECOXIB. [Concomitant]
     Active Substance: CELECOXIB
     Dosage: 200 MILLIGRAM, QD
     Route: 048
  8. METFORMIN [Concomitant]
     Active Substance: METFORMIN HYDROCHLORIDE
     Dosage: 500 MILLIGRAM
     Route: 048
  9. VITAMIN D3 [Concomitant]
     Active Substance: CHOLECALCIFEROL
     Dosage: 1000 UNITS (1 CAPSULE), QD
     Route: 048
  10. VITAMIN C [Concomitant]
     Active Substance: ASCORBIC ACID
     Dosage: 500 MILLIGRAM, QD (500MG 1 TABLET DAILY)
  11. DULOXETINE. [Concomitant]
     Active Substance: DULOXETINE
     Dosage: 60 MILLIGRAM, QD (30 MILLIGRAM,  2 CAPSULE )
     Route: 048
  12. FLUTICASONE. [Concomitant]
     Active Substance: FLUTICASONE
     Dosage: UNK, 50 MCG/INH
  13. PREDNISONE. [Concomitant]
     Active Substance: PREDNISONE
     Dosage: 10 MILLIGRAM, QD (5 MILLIGRAM 2 TABLETS)
     Route: 048
  14. XELJANZ XR [Concomitant]
     Active Substance: TOFACITINIB CITRATE
     Dosage: 11 MILLIGRAM, QD
     Route: 048
  15. COQ 10 [Concomitant]
     Active Substance: UBIDECARENONE
     Dosage: 300 MILLIGRAM, QD
     Route: 048
  16. ASPIRIN [ACETYLSALICYLIC ACID] [Concomitant]
     Active Substance: ASPIRIN
     Dosage: 81 MILLIGRAM, QD (ENTERIC COATED TABLET)
     Route: 048
  17. ATORVASTATIN [Concomitant]
     Active Substance: ATORVASTATIN
     Dosage: 20 MILLIGRAM
     Route: 048
  18. TRAZODONE [Concomitant]
     Active Substance: TRAZODONE HYDROCHLORIDE
     Dosage: 100 MILLIGRAM, QD (EACH NIGHT AT BEDTIME)
     Route: 048
  19. VICTOZA [Concomitant]
     Active Substance: LIRAGLUTIDE
     Dosage: 18 MILLIGRAM/3 ML
     Route: 058
  20. MTX [METHOTREXATE SODIUM] [Suspect]
     Active Substance: METHOTREXATE SODIUM
     Indication: PRODUCT USED FOR UNKNOWN INDICATION
     Dosage: UNK
     Route: 065
  21. COSENTYX [Concomitant]
     Active Substance: SECUKINUMAB
     Dosage: UNK
  22. QUINAPRIL. [Concomitant]
     Active Substance: QUINAPRIL
     Dosage: 40 MILLIGRAM, QD
  23. BENADRYL [Concomitant]
     Active Substance: DIPHENHYDRAMINE HYDROCHLORIDE
     Dosage: 25 MILLIGRAM, QD (EACH NIGHT AT BEDTIME)
     Route: 048
  24. VITAMIN B12 [Concomitant]
     Active Substance: CYANOCOBALAMIN
     Dosage: 500 MICROGRAM
     Route: 048
  25. HUMIRA [Suspect]
     Active Substance: ADALIMUMAB
     Indication: PRODUCT USED FOR UNKNOWN INDICATION
     Dosage: UNK
     Route: 065
  26. LORATADINE. [Concomitant]
     Active Substance: LORATADINE
     Dosage: UNK UNK, QD
  27. NOVOLOG [Concomitant]
     Active Substance: INSULIN ASPART
     Dosage: (70/30 FLEXPEN) UNK
     Route: 058
  28. TIZANIDINE. [Concomitant]
     Active Substance: TIZANIDINE
     Dosage: 4 MILLIGRAM, QD
     Route: 048
  29. ENBREL [Suspect]
     Active Substance: ETANERCEPT
     Indication: PRODUCT USED FOR UNKNOWN INDICATION
     Dosage: UNK
     Route: 065
  30. OTEZLA [Concomitant]
     Active Substance: APREMILAST
     Dosage: UNK
  31. CONTOUR [ESOMEPRAZOLE MAGNESIUM] [Concomitant]
     Dosage: UNK

REACTIONS (5)
  - Infection [Recovered/Resolved]
  - Arthralgia [Unknown]
  - Swelling [Recovered/Resolved]
  - Pain in extremity [Unknown]
  - Musculoskeletal stiffness [Unknown]
